FAERS Safety Report 19164026 (Version 1)
Quarter: 2021Q2

REPORT INFORMATION
  Report Type: Spontaneous
  Country: FR (occurrence: FR)
  Receive Date: 20210421
  Receipt Date: 20210421
  Transmission Date: 20210717
  Serious: Yes (Hospitalization)
  Sender: FDA-Public Use
  Company Number: FR-PFIZER INC-2021398165

PATIENT
  Age: 69 Year
  Sex: Female
  Weight: 72 kg

DRUGS (6)
  1. ASTRAZENECA COVID?19 VACCINE [Suspect]
     Active Substance: AZD-1222
     Indication: COVID-19 IMMUNISATION
     Dosage: 1 DF, SINGLE
     Route: 030
     Dates: start: 20210326, end: 20210326
  2. AMLODIPINA ALMUS [Concomitant]
     Active Substance: AMLODIPINE BESYLATE
     Route: 048
  3. PANTOPRAZOLE SODIUM. [Concomitant]
     Active Substance: PANTOPRAZOLE SODIUM
     Route: 048
  4. TERALITHE [Suspect]
     Active Substance: LITHIUM CARBONATE
     Indication: BIPOLAR DISORDER
     Dosage: 1.5 DF, 1X/DAY
     Route: 048
     Dates: end: 20210320
  5. VALSARTAN ARROW [Concomitant]
     Active Substance: VALSARTAN
     Route: 048
  6. EFFEXOR LP [Suspect]
     Active Substance: VENLAFAXINE HYDROCHLORIDE
     Indication: BIPOLAR DISORDER
     Dosage: UNK
     Route: 048

REACTIONS (3)
  - Confusional state [Recovering/Resolving]
  - Encephalopathy [Recovering/Resolving]
  - Off label use [Unknown]

NARRATIVE: CASE EVENT DATE: 20210327
